FAERS Safety Report 20190584 (Version 1)
Quarter: 2021Q4

REPORT INFORMATION
  Report Type: Spontaneous
  Country: US (occurrence: None)
  Receive Date: 20211216
  Receipt Date: 20211216
  Transmission Date: 20220303
  Serious: No
  Sender: FDA-Public Use
  Company Number: US-SUPERNUS PHARMACEUTICALS, INC.-2018SUP00299

PATIENT
  Age: 58 Year
  Sex: Female
  Weight: 90.703 kg

DRUGS (18)
  1. TROKENDI XR [Suspect]
     Active Substance: TOPIRAMATE
     Indication: Seizure
     Dosage: 25 MG, ONCE AT NOON (ALSO REPORTED AS IN THE MORNING HOURS)
     Route: 048
     Dates: start: 20181004, end: 20181004
  2. TROKENDI XR [Suspect]
     Active Substance: TOPIRAMATE
     Indication: Migraine
  3. TROKENDI XR [Suspect]
     Active Substance: TOPIRAMATE
  4. TROKENDI XR [Suspect]
     Active Substance: TOPIRAMATE
  5. TROKENDI XR [Suspect]
     Active Substance: TOPIRAMATE
  6. OXTELLAR XR [Suspect]
     Active Substance: OXCARBAZEPINE
     Indication: Seizure
     Dosage: 900 MG, 1X/DAY AT BEDTIME
     Route: 048
     Dates: start: 201905
  7. UNSPECIFIED INGREDIENT [Concomitant]
     Active Substance: UNSPECIFIED INGREDIENT
  8. POTASSIUM [Concomitant]
     Active Substance: POTASSIUM
     Dosage: 8 DOSAGE UNITS, 1X/DAY
  9. POTASSIUM [Concomitant]
     Active Substance: POTASSIUM
  10. POTASSIUM [Concomitant]
     Active Substance: POTASSIUM
  11. POTASSIUM [Concomitant]
     Active Substance: POTASSIUM
  12. POTASSIUM [Concomitant]
     Active Substance: POTASSIUM
  13. POTASSIUM [Concomitant]
     Active Substance: POTASSIUM
  14. POTASSIUM [Concomitant]
     Active Substance: POTASSIUM
  15. POTASSIUM [Concomitant]
     Active Substance: POTASSIUM
  16. POTASSIUM [Concomitant]
     Active Substance: POTASSIUM
  17. POTASSIUM [Concomitant]
     Active Substance: POTASSIUM
  18. POTASSIUM [Concomitant]
     Active Substance: POTASSIUM

REACTIONS (11)
  - Nightmare [Recovered/Resolved]
  - Feeling hot [Recovered/Resolved]
  - Fear [Recovered/Resolved]
  - Drug level [Not Recovered/Not Resolved]
  - Abnormal dreams [Not Recovered/Not Resolved]
  - Product dose omission issue [Not Recovered/Not Resolved]
  - Hyperhidrosis [Recovered/Resolved]
  - Middle insomnia [Not Recovered/Not Resolved]
  - Dysphemia [Not Recovered/Not Resolved]
  - Aphasia [Not Recovered/Not Resolved]
  - Blood pressure increased [Recovered/Resolved]

NARRATIVE: CASE EVENT DATE: 20181001
